FAERS Safety Report 6599376-9 (Version None)
Quarter: 2010Q1

REPORT INFORMATION
  Report Type: 
  Country: None (occurrence: None)
  Receive Date: 20100216
  Receipt Date: 20100203
  Transmission Date: 20100710
  Serious: Yes (Hospitalization)
  Sender: FDA-Public Use
  Company Number: WAES 0808FRA00044

PATIENT
  Age: 76 Year
  Sex: Male

DRUGS (8)
  1. CAP VORINOSTAT [Suspect]
     Indication: MYELODYSPLASTIC SYNDROME
     Dosage: 400 MG/DAILY, PO
     Route: 048
     Dates: start: 20080813, end: 20080825
  2. CAP VORINOSTAT [Suspect]
     Indication: MYELODYSPLASTIC SYNDROME
     Dosage: 400 MG/DAILY, PO
     Route: 048
     Dates: start: 20080901
  3. CYTARABINE [Suspect]
     Indication: MYELODYSPLASTIC SYNDROME
     Dosage: 10 MG/DAILY, SC
     Route: 058
     Dates: start: 20080729, end: 20080812
  4. AMIODARONE HYDROCHLORIDE [Concomitant]
  5. DEFERASIROX [Concomitant]
  6. GLICLAZIDE [Concomitant]
  7. TAMSULOSIN HYDROCHLORIDE [Concomitant]
  8. TINZAPARIN SODIUM [Concomitant]

REACTIONS (5)
  - ACCIDENTAL OVERDOSE [None]
  - HAEMATOLOGY TEST ABNORMAL [None]
  - HYPERTENSION [None]
  - PANCYTOPENIA [None]
  - TRANSFUSION REACTION [None]
